FAERS Safety Report 6805096-5 (Version None)
Quarter: 2010Q2

REPORT INFORMATION
  Report Type: 
  Country: None (occurrence: None)
  Receive Date: 20100628
  Receipt Date: 20070827
  Transmission Date: 20101027
  Serious: No
  Sender: FDA-Public Use
  Company Number: US-PFIZER INC-2007072088

PATIENT
  Sex: Male
  Weight: 65.77 kg

DRUGS (3)
  1. PROCARDIA XL [Suspect]
     Indication: CEREBROVASCULAR ACCIDENT
     Route: 048
     Dates: start: 19920101
  2. PROCARDIA XL [Suspect]
     Indication: HYPERTENSION
  3. LUMIGAN [Concomitant]
     Indication: GLAUCOMA

REACTIONS (3)
  - BLOOD PRESSURE DECREASED [None]
  - DIZZINESS [None]
  - WEIGHT DECREASED [None]
